FAERS Safety Report 13562514 (Version 9)
Quarter: 2020Q2

REPORT INFORMATION
  Report Type: Spontaneous
  Country: US (occurrence: US)
  Receive Date: 20170516
  Receipt Date: 20200512
  Transmission Date: 20200713
  Serious: No
  Sender: FDA-Public Use
  Company Number: US-PFIZER INC-2017210790

PATIENT
  Age: 66 Year
  Sex: Female

DRUGS (3)
  1. FLECTOR [Concomitant]
     Active Substance: DICLOFENAC EPOLAMINE
     Indication: MYALGIA
     Dosage: 1 DF, 2X/DAY
     Route: 062
  2. LYRICA [Suspect]
     Active Substance: PREGABALIN
     Indication: PAIN
     Dosage: 50 MG, AS NEEDED, (TWICE DAILY)
  3. LYRICA [Suspect]
     Active Substance: PREGABALIN
     Indication: FIBROMYALGIA
     Dosage: 25 MG, AS NEEDED, (FOUR TIMES/DAY )
     Route: 048

REACTIONS (9)
  - Fall [Unknown]
  - Peripheral swelling [Unknown]
  - Malaise [Unknown]
  - Pain [Unknown]
  - Swelling [Unknown]
  - Housebound [Unknown]
  - Nail disorder [Unknown]
  - Anxiety [Unknown]
  - Gait disturbance [Unknown]

NARRATIVE: CASE EVENT DATE: 201704
